FAERS Safety Report 4858712-1 (Version None)
Quarter: 2005Q4

REPORT INFORMATION
  Report Type: 
  Country: None (occurrence: None)
  Receive Date: 20051219
  Receipt Date: 20051018
  Transmission Date: 20060501
  Serious: No
  Sender: FDA-Public Use
  Company Number: US-GLAXOSMITHKLINE-A0578956A

PATIENT
  Sex: Male

DRUGS (1)
  1. NICODERM CQ [Suspect]

REACTIONS (5)
  - DYSGEUSIA [None]
  - HEART RATE INCREASED [None]
  - NAUSEA [None]
  - NERVOUSNESS [None]
  - PANIC REACTION [None]
